FAERS Safety Report 19353155 (Version 2)
Quarter: 2021Q2

REPORT INFORMATION
  Report Type: Report from Study
  Country: GB (occurrence: GB)
  Receive Date: 20210531
  Receipt Date: 20210621
  Transmission Date: 20210717
  Serious: Yes (Hospitalization, Other)
  Sender: FDA-Public Use
  Company Number: NVSC2021GB114970

PATIENT
  Age: 14 Year
  Sex: Female
  Weight: 75 kg

DRUGS (3)
  1. ENTONOX [Suspect]
     Active Substance: NITROUS OXIDE\OXYGEN
     Indication: PAIN
     Dosage: UNK UNK, PRN (GAS)
     Route: 055
  2. AFINITOR [Suspect]
     Active Substance: EVEROLIMUS
     Indication: METASTASIS
  3. AFINITOR [Suspect]
     Active Substance: EVEROLIMUS
     Indication: NON-HODGKIN^S LYMPHOMA
     Dosage: 10 UNK
     Route: 048

REACTIONS (10)
  - Pancytopenia [Recovered/Resolved]
  - Malaise [Unknown]
  - Encephalopathy [Recovered/Resolved]
  - Mental disorder [Recovered/Resolved]
  - Febrile neutropenia [Recovered/Resolved]
  - Oral herpes [Recovered/Resolved]
  - Anaemia vitamin B12 deficiency [Recovered/Resolved]
  - Pain [Recovering/Resolving]
  - Neutropenia [Unknown]
  - Sepsis [Unknown]

NARRATIVE: CASE EVENT DATE: 20201128
